FAERS Safety Report 22632303 (Version 1)
Quarter: 2023Q2

REPORT INFORMATION
  Report Type: Spontaneous
  Country: US (occurrence: US)
  Receive Date: 20230623
  Receipt Date: 20230623
  Transmission Date: 20230722
  Serious: No
  Sender: FDA-Public Use
  Company Number: US-002147023-NVSC2023US142182

PATIENT

DRUGS (1)
  1. KESIMPTA [Suspect]
     Active Substance: OFATUMUMAB
     Indication: Relapsing multiple sclerosis
     Dosage: 20 MG (SINGLE DOSE)
     Route: 058
     Dates: start: 20230616

REACTIONS (3)
  - Pain in extremity [Not Recovered/Not Resolved]
  - Pyrexia [Unknown]
  - Muscular weakness [Unknown]
